FAERS Safety Report 12644322 (Version 2)
Quarter: 2016Q4

REPORT INFORMATION
  Report Type: Spontaneous
  Country: JP (occurrence: JP)
  Receive Date: 20160811
  Receipt Date: 20161019
  Transmission Date: 20170207
  Serious: Yes (Other)
  Sender: FDA-Public Use
  Company Number: JP-ASTRAZENECA-2016SE84761

PATIENT
  Age: 74 Year
  Sex: Male

DRUGS (2)
  1. GONAX [Concomitant]
     Active Substance: DEGARELIX
     Indication: BREAST CANCER MALE
     Route: 065
  2. FASLODEX [Suspect]
     Active Substance: FULVESTRANT
     Indication: BREAST CANCER MALE
     Dosage: 500.0MG UNKNOWN
     Route: 030
     Dates: start: 201211, end: 201511

REACTIONS (3)
  - Prostate cancer [Not Recovered/Not Resolved]
  - Off label use [Unknown]
  - Product use issue [Unknown]

NARRATIVE: CASE EVENT DATE: 201302
